FAERS Safety Report 4562338-7 (Version None)
Quarter: 2005Q1

REPORT INFORMATION
  Report Type: 
  Country: None (occurrence: None)
  Receive Date: 20050127
  Receipt Date: 20041006
  Transmission Date: 20050727
  Serious: No
  Sender: FDA-Public Use
  Company Number: US-BRISTOL-MYERS SQUIBB COMPANY-12724225

PATIENT
  Age: 68 Year
  Sex: Female
  Weight: 100 kg

DRUGS (4)
  1. METAGLIP [Suspect]
     Indication: DIABETES MELLITUS NON-INSULIN-DEPENDENT
     Dosage: DOSAGE FORM = 5MG/500MG TABLET
     Route: 048
  2. NORVASC [Concomitant]
  3. LIPITOR [Concomitant]
  4. TOPROL-XL [Concomitant]

REACTIONS (3)
  - BLOOD GLUCOSE INCREASED [None]
  - ESCHERICHIA INFECTION [None]
  - MEDICATION ERROR [None]
